FAERS Safety Report 21330770 (Version 2)
Quarter: 2022Q3

REPORT INFORMATION
  Report Type: Spontaneous
  Country: AU (occurrence: AU)
  Receive Date: 20220914
  Receipt Date: 20220926
  Transmission Date: 20221026
  Serious: Yes (Death, Life-Threatening)
  Sender: FDA-Public Use
  Company Number: AU-drreddys-LIT/AUS/22/0154339

PATIENT
  Age: 41 Year
  Sex: Male

DRUGS (13)
  1. CAPECITABINE [Suspect]
     Active Substance: CAPECITABINE
     Indication: Chemotherapy
  2. CAPECITABINE [Suspect]
     Active Substance: CAPECITABINE
     Indication: Hypoglycaemia
  3. TEMOZOLOMIDE [Suspect]
     Active Substance: TEMOZOLOMIDE
     Indication: Chemotherapy
  4. TEMOZOLOMIDE [Suspect]
     Active Substance: TEMOZOLOMIDE
     Indication: Hypoglycaemia
  5. DEXAMETHASONE [Suspect]
     Active Substance: DEXAMETHASONE
     Indication: Chemotherapy
  6. DEXAMETHASONE [Suspect]
     Active Substance: DEXAMETHASONE
     Indication: Hypoglycaemia
  7. OCTREOTIDE [Suspect]
     Active Substance: OCTREOTIDE
     Indication: Hypoglycaemia
  8. EVEROLIMUS [Suspect]
     Active Substance: EVEROLIMUS
     Indication: Chemotherapy
  9. EVEROLIMUS [Suspect]
     Active Substance: EVEROLIMUS
     Indication: Hypoglycaemia
  10. DEXTROSE [Suspect]
     Active Substance: DEXTROSE
     Indication: Hypoglycaemia
  11. LUTETIUM OXODOTREOTIDE LU-177 [Suspect]
     Active Substance: LUTETIUM OXODOTREOTIDE LU-177
     Indication: Insulinoma
  12. PREDNISOLONE [Concomitant]
     Active Substance: PREDNISOLONE
     Indication: Product used for unknown indication
  13. DIAZOXIDE [Concomitant]
     Active Substance: DIAZOXIDE
     Indication: Product used for unknown indication

REACTIONS (2)
  - Death [Fatal]
  - Drug ineffective for unapproved indication [Unknown]
